FAERS Safety Report 6593736-8 (Version None)
Quarter: 2010Q1

REPORT INFORMATION
  Report Type: 
  Country: None (occurrence: None)
  Receive Date: 20100222
  Receipt Date: 20100217
  Transmission Date: 20100710
  Serious: Yes (Other)
  Sender: FDA-Public Use
  Company Number: JP-SANOFI-AVENTIS-2010SA009224

PATIENT
  Age: 76 Year
  Sex: Male

DRUGS (14)
  1. TAXOTERE [Suspect]
  2. TAXOTERE [Suspect]
  3. CARBOPLATIN [Concomitant]
  4. CARBOPLATIN [Concomitant]
  5. WARFARIN SODIUM [Concomitant]
     Route: 048
  6. LASIX [Concomitant]
  7. ALDACTONE [Concomitant]
  8. DIGOXIN [Concomitant]
  9. SALOBEL [Concomitant]
  10. EUGLUCON [Concomitant]
  11. DECADRON [Concomitant]
  12. NASEA [Concomitant]
  13. KYTRIL [Concomitant]
  14. CHLOR-TRIMETON [Concomitant]

REACTIONS (2)
  - EPISTAXIS [None]
  - INTERNATIONAL NORMALISED RATIO INCREASED [None]
